FAERS Safety Report 8392351 (Version 6)
Quarter: 2012Q4

REPORT INFORMATION
  Report Type: 
  Country: JP (occurrence: JP)
  Receive Date: 20120206
  Receipt Date: 20121029
  Transmission Date: 20130627
  Serious: Yes (Other)
  Sender: FDA-Public Use
  Company Number: PHHY2012JP008937

PATIENT
  Age: 63 Year
  Sex: Male
  Weight: 63 kg

DRUGS (13)
  1. AFINITOR [Suspect]
     Indication: METASTATIC RENAL CELL CARCINOMA
     Dosage: 10 mg, daily
     Route: 048
     Dates: start: 20111019
  2. ZOMETA [Concomitant]
     Indication: METASTATIC RENAL CELL CARCINOMA
     Dosage: 4 mg, UNK
     Dates: start: 20110930
  3. ZOMETA [Concomitant]
     Dosage: 3.3 mg, UNK
     Dates: start: 20121025
  4. OXYCONTIN [Concomitant]
     Indication: METASTATIC RENAL CELL CARCINOMA
     Dosage: 10 mg
     Route: 048
     Dates: start: 20111003, end: 20120525
  5. LOXOPROFEN [Concomitant]
     Indication: METASTATIC RENAL CELL CARCINOMA
     Dosage: 180 mg
     Route: 048
     Dates: start: 20111007, end: 20120309
  6. NOVAMIN [Concomitant]
     Indication: PROPHYLAXIS OF NAUSEA AND VOMITING
     Dosage: 10 mg, UNK
     Route: 048
     Dates: start: 20111101, end: 20120525
  7. KALIMATE [Concomitant]
     Indication: HYPERKALAEMIA
     Dosage: 15 g, UNK
     Route: 048
     Dates: start: 20110510
  8. GASTER [Concomitant]
     Indication: GASTRITIS
     Dosage: 20 g, UNK
     Route: 048
     Dates: start: 20111018
  9. PURSENNID [Concomitant]
     Indication: CONSTIPATION
     Dosage: 24 g, UNK
     Route: 048
     Dates: start: 20111018, end: 20120406
  10. PURSENNID [Concomitant]
     Dosage: 24 g, daily
     Route: 048
     Dates: start: 20120615
  11. LAXOBERON [Concomitant]
     Indication: CONSTIPATION
     Route: 048
     Dates: start: 20120113, end: 20120113
  12. MAGMITT [Concomitant]
     Indication: CONSTIPATION
     Dosage: 1980 mg, UNK
     Route: 048
     Dates: start: 20111216
  13. FERROMIA [Concomitant]
     Indication: ANAEMIA
     Dosage: 100 mg, UNK
     Route: 048
     Dates: start: 20120210, end: 20120614

REACTIONS (5)
  - Pericardial effusion [Recovering/Resolving]
  - C-reactive protein increased [Unknown]
  - Pleural effusion [Recovering/Resolving]
  - Anaemia [Not Recovered/Not Resolved]
  - Hyperglycaemia [Not Recovered/Not Resolved]
